FAERS Safety Report 11003235 (Version 2)
Quarter: 2015Q2

REPORT INFORMATION
  Report Type: Spontaneous
  Country: US (occurrence: US)
  Receive Date: 20150409
  Receipt Date: 20150512
  Transmission Date: 20150821
  Serious: Yes (Other)
  Sender: FDA-Public Use
  Company Number: US-UCBSA-2015010927

PATIENT

DRUGS (4)
  1. CIMZIA [Suspect]
     Active Substance: CERTOLIZUMAB PEGOL
     Indication: CROHN^S DISEASE
     Dosage: 200 MG, EV 2 WEEKS(QOW)
     Route: 064
     Dates: start: 20140729, end: 2014
  2. METHYLDOPA. [Concomitant]
     Active Substance: METHYLDOPA
     Indication: HYPERTENSION
     Dosage: UNK
     Route: 064
     Dates: end: 20141225
  3. PRENATAL VITAMINS [Concomitant]
     Active Substance: VITAMINS
     Indication: SUPPLEMENTATION THERAPY
     Dosage: 1 DF, ONCE DAILY (QD)
     Route: 064
     Dates: start: 2014, end: 2014
  4. PREVACID [Concomitant]
     Active Substance: LANSOPRAZOLE
     Indication: CROHN^S DISEASE
     Dosage: 30 MG, ONCE DAILY (QD)
     Route: 064
     Dates: end: 20141225

REACTIONS (2)
  - Foetal exposure during pregnancy [Unknown]
  - Small for dates baby [Unknown]

NARRATIVE: CASE EVENT DATE: 201407
